FAERS Safety Report 9142254 (Version 1)
Quarter: 2013Q1

REPORT INFORMATION
  Report Type: Spontaneous
  Country: DE (occurrence: DE)
  Receive Date: 20130305
  Receipt Date: 20130305
  Transmission Date: 20140127
  Serious: Yes (Other)
  Sender: FDA-Public Use
  Company Number: DE-MYLANLABS-2013S1004732

PATIENT
  Age: 35 Year
  Sex: Female

DRUGS (2)
  1. BISOPROLOL [Suspect]
     Indication: ARRHYTHMIA
     Dosage: 10 [MG/D ]/ DOSAGE REDUCED FROM GESTATIONAL WEEK 24 UNTIL DELIVERY
     Dates: start: 20090714, end: 20100406
  2. THYRONAJOD [Concomitant]
     Indication: HYPOTHYROIDISM
     Dosage: 25 [UG/D ] / 75 [UG/D ]
     Route: 048

REACTIONS (4)
  - Exposure during pregnancy [Unknown]
  - Oligohydramnios [Unknown]
  - Premature rupture of membranes [Unknown]
  - Foetal growth restriction [Unknown]
